FAERS Safety Report 4702831-7 (Version None)
Quarter: 2005Q2

REPORT INFORMATION
  Report Type: 
  Country: None (occurrence: None)
  Receive Date: 20050629
  Receipt Date: 20050311
  Transmission Date: 20051028
  Serious: Yes (Hospitalization, Other)
  Sender: FDA-Public Use
  Company Number: US-MERCK-0503USA02723

PATIENT
  Age: 77 Year
  Sex: Male
  Weight: 114 kg

DRUGS (8)
  1. VIOXX [Suspect]
     Indication: ARTHRALGIA
     Route: 048
     Dates: start: 20030801, end: 20031001
  2. VIOXX [Suspect]
     Route: 048
     Dates: start: 20040501, end: 20040901
  3. ASPIRIN [Concomitant]
     Route: 065
     Dates: start: 19870901
  4. ZOCOR [Concomitant]
     Route: 065
     Dates: start: 20001201
  5. TOPROL-XL [Concomitant]
     Route: 065
     Dates: start: 20001201
  6. LASIX [Concomitant]
     Route: 065
     Dates: start: 20040601
  7. ENALAPRIL COMP [Concomitant]
     Route: 065
  8. MECLIZINE [Concomitant]
     Route: 065
     Dates: start: 20040901

REACTIONS (14)
  - ACUTE MYOCARDIAL INFARCTION [None]
  - ANXIETY [None]
  - ATHEROSCLEROSIS [None]
  - CARDIAC DISORDER [None]
  - DECUBITUS ULCER [None]
  - DEPRESSION [None]
  - DIZZINESS [None]
  - FEAR [None]
  - HERPES SIMPLEX [None]
  - OEDEMA PERIPHERAL [None]
  - UPPER RESPIRATORY TRACT INFECTION [None]
  - URINARY TRACT OBSTRUCTION [None]
  - VENOUS INSUFFICIENCY [None]
  - VERTIGO [None]
